FAERS Safety Report 4352497-3 (Version None)
Quarter: 2004Q2

REPORT INFORMATION
  Report Type: 
  Country: None (occurrence: None)
  Receive Date: 20040409
  Receipt Date: 20040213
  Transmission Date: 20050107
  Serious: No
  Sender: FDA-Public Use
  Company Number: PHEH2004US00739

PATIENT
  Age: 60 Week
  Sex: Female
  Weight: 20.4 kg

DRUGS (1)
  1. ELIDEL [Suspect]
     Indication: ECZEMA
     Dosage: TOPICAL
     Route: 061
     Dates: start: 20030101

REACTIONS (2)
  - APPLICATION SITE IRRITATION [None]
  - ERYTHEMA [None]
